FAERS Safety Report 9613581 (Version 3)
Quarter: 2013Q4

REPORT INFORMATION
  Report Type: Spontaneous
  Country: US (occurrence: US)
  Receive Date: 20131010
  Receipt Date: 20131023
  Transmission Date: 20140711
  Serious: Yes (Other)
  Sender: FDA-Public Use
  Company Number: US-GILEAD-2013-0084760

PATIENT
  Sex: Female

DRUGS (3)
  1. LETAIRIS [Suspect]
     Indication: PULMONARY HYPERTENSION
     Dosage: 10 MG, QD
     Dates: start: 20121119
  2. LETAIRIS [Suspect]
     Indication: SARCOIDOSIS
  3. SILDENAFIL CITRATE [Concomitant]

REACTIONS (1)
  - Lung transplant [Unknown]
